FAERS Safety Report 11391612 (Version 2)
Quarter: 2016Q1

REPORT INFORMATION
  Report Type: Spontaneous
  Country: US (occurrence: US)
  Receive Date: 20150818
  Receipt Date: 20160105
  Transmission Date: 20160525
  Serious: Yes (Other)
  Sender: FDA-Public Use
  Company Number: US-PFIZER INC-2015261975

PATIENT
  Age: 74 Year
  Sex: Female

DRUGS (3)
  1. IBRANCE [Suspect]
     Active Substance: PALBOCICLIB
     Indication: BREAST CANCER STAGE IV
     Dosage: 100 MG, CYCLIC (DAY 1-21 Q 28 DAYS) (DAY 1-7 Q 14 DAYS) (7 DAYS ON 7 DAYS OFF Q 28 DAYS)
     Route: 048
     Dates: start: 20150225
  2. FEMARA [Suspect]
     Active Substance: LETROZOLE
     Dosage: UNK
  3. IBRANCE [Suspect]
     Active Substance: PALBOCICLIB
     Dosage: 100 MG, CYCLIC (DAY 1-7 Q 14 DAYS)
     Route: 048
     Dates: start: 20150225

REACTIONS (5)
  - Blood glucose increased [Unknown]
  - Hunger [Unknown]
  - Laboratory test abnormal [Unknown]
  - Pain in extremity [Unknown]
  - Pain [Unknown]

NARRATIVE: CASE EVENT DATE: 2015
